FAERS Safety Report 5495028-7 (Version None)
Quarter: 2007Q4

REPORT INFORMATION
  Report Type: 
  Country: None (occurrence: None)
  Receive Date: 20071015
  Receipt Date: 20070307
  Transmission Date: 20080405
  Serious: Yes (Other)
  Sender: FDA-Public Use
  Company Number: S07-USA-01051-01

PATIENT
  Age: 52 Year
  Sex: Female

DRUGS (3)
  1. LEXAPRO [Suspect]
     Indication: ANXIETY
     Dosage: 10 MG QD PO
     Route: 048
     Dates: start: 20070228, end: 20070301
  2. LEXAPRO [Suspect]
     Indication: ANXIETY
     Dosage: 5 MG QD PO
     Route: 048
     Dates: start: 20070302, end: 20070302
  3. AVAPRO [Concomitant]

REACTIONS (10)
  - BLOOD PRESSURE INCREASED [None]
  - DIARRHOEA [None]
  - DIZZINESS [None]
  - FEELING HOT [None]
  - HEADACHE [None]
  - INSOMNIA [None]
  - PERIPHERAL COLDNESS [None]
  - RESTLESSNESS [None]
  - TACHYCARDIA [None]
  - TREMOR [None]
